FAERS Safety Report 11558584 (Version 1)
Quarter: 2015Q3

REPORT INFORMATION
  Report Type: Spontaneous
  Country: US (occurrence: None)
  Receive Date: 20150925
  Receipt Date: 20150925
  Transmission Date: 20151125
  Serious: Yes (Disabling)
  Sender: FDA-Public Use
  Company Number: None

PATIENT
  Age: 64 Year
  Sex: Female
  Weight: 65.77 kg

DRUGS (11)
  1. MULTI VITAMIN [Concomitant]
     Active Substance: VITAMINS
  2. VITAMIN B12 [Concomitant]
     Active Substance: CYANOCOBALAMIN
  3. FISH OIL [Concomitant]
     Active Substance: FISH OIL
  4. CITALOPRAM HYDROBROMIDE 20 MG TORRENT [Suspect]
     Active Substance: CITALOPRAM HYDROBROMIDE
     Indication: MENOPAUSE
     Dosage: 1/2 PILL
     Route: 048
  5. CALCIUM [Concomitant]
     Active Substance: CALCIUM
  6. CITALOPRAM HYDROBROMIDE 20 MG TORRENT [Suspect]
     Active Substance: CITALOPRAM HYDROBROMIDE
     Indication: HOT FLUSH
     Dosage: 1/2 PILL
     Route: 048
  7. LEVOTHYROXINE. [Concomitant]
     Active Substance: LEVOTHYROXINE
  8. PANTOPRAZOLE SODIUM. [Concomitant]
     Active Substance: PANTOPRAZOLE SODIUM
  9. VITAMIN C [Concomitant]
     Active Substance: ASCORBIC ACID
  10. NASONEX [Concomitant]
     Active Substance: MOMETASONE FUROATE
  11. D3 [Concomitant]
     Active Substance: 25-HYDROXYCHOLECALCIFEROL, 5-TRANS-

REACTIONS (3)
  - Rash [None]
  - Holmes-Adie pupil [None]
  - Eye pain [None]

NARRATIVE: CASE EVENT DATE: 20130107
